FAERS Safety Report 25420080 (Version 3)
Quarter: 2025Q2

REPORT INFORMATION
  Report Type: Spontaneous
  Country: US (occurrence: US)
  Receive Date: 20250610
  Receipt Date: 20250620
  Transmission Date: 20250716
  Serious: No
  Sender: SANOFI AVENTIS
  Company Number: US-SA-2025SA163347

PATIENT
  Age: 41 Year
  Sex: Female

DRUGS (1)
  1. DUPIXENT [Suspect]
     Active Substance: DUPILUMAB
     Route: 058
     Dates: start: 20250604, end: 20250604

REACTIONS (5)
  - Scratch [Unknown]
  - Rash erythematous [Recovering/Resolving]
  - Pruritus [Unknown]
  - Pharyngitis [Unknown]
  - Erythema [Unknown]

NARRATIVE: CASE EVENT DATE: 20250601
